FAERS Safety Report 15390503 (Version 1)
Quarter: 2018Q4

REPORT INFORMATION
  Report Type: Spontaneous
  Country: GB (occurrence: GB)
  Receive Date: 20180917
  Receipt Date: 20180917
  Transmission Date: 20190204
  Serious: Yes (Hospitalization, Other)
  Sender: FDA-Public Use
  Company Number: GB-BION-007412

PATIENT
  Age: 64 Year
  Sex: Male

DRUGS (5)
  1. NIMODIPINE. [Suspect]
     Active Substance: NIMODIPINE
  2. METFORMIN [Suspect]
     Active Substance: METFORMIN HYDROCHLORIDE
     Dosage: 42 G
  3. RISPERIDONE. [Suspect]
     Active Substance: RISPERIDONE
     Dosage: 88 MG
  4. RANITIDINE. [Suspect]
     Active Substance: RANITIDINE
     Dosage: 9 G
  5. PRAVASTATIN/PRAVASTATIN SODIUM [Suspect]
     Active Substance: PRAVASTATIN SODIUM
     Dosage: 840 MG

REACTIONS (6)
  - Brain injury [Unknown]
  - Intentional overdose [Unknown]
  - Sinus bradycardia [Unknown]
  - Renal failure [Unknown]
  - Polyneuropathy [Unknown]
  - Cardiogenic shock [Unknown]
